FAERS Safety Report 24614479 (Version 4)
Quarter: 2025Q1

REPORT INFORMATION
  Report Type: Spontaneous
  Country: US (occurrence: US)
  Receive Date: 20241113
  Receipt Date: 20250218
  Transmission Date: 20250409
  Serious: Yes (Hospitalization, Other)
  Sender: BRISTOL-MYERS SQUIBB COMPANY
  Company Number: US-BRISTOL-MYERS SQUIBB COMPANY-2024-177668

PATIENT
  Age: 76 Year
  Sex: Male

DRUGS (4)
  1. POMALYST [Suspect]
     Active Substance: POMALIDOMIDE
     Indication: Plasma cell myeloma
     Route: 048
     Dates: start: 202409
  2. POMALYST [Suspect]
     Active Substance: POMALIDOMIDE
     Route: 048
     Dates: start: 202409
  3. POMALYST [Suspect]
     Active Substance: POMALIDOMIDE
     Route: 048
     Dates: start: 202409
  4. POMALYST [Suspect]
     Active Substance: POMALIDOMIDE
     Dosage: FREQUENCY: TAKE 1 CAPSULE BY MOUTH 1 TIME A DAY FOR 21 DAYS ON AND 7 DAYS OF
     Route: 048
     Dates: start: 202409

REACTIONS (13)
  - Joint swelling [Unknown]
  - Pain in extremity [Unknown]
  - Mood altered [Unknown]
  - Depression [Unknown]
  - Fatigue [Unknown]
  - Pruritus [Unknown]
  - Abdominal pain [Unknown]
  - Aggression [Unknown]
  - Pneumonia [Unknown]
  - Cellulitis [Unknown]
  - Anxiety [Unknown]
  - Fall [Unknown]
  - Urinary tract infection [Unknown]
